FAERS Safety Report 5468167-4 (Version None)
Quarter: 2007Q3

REPORT INFORMATION
  Report Type: 
  Country: None (occurrence: None)
  Receive Date: 20070926
  Receipt Date: 20070913
  Transmission Date: 20080115
  Serious: Yes (Hospitalization)
  Sender: FDA-Public Use
  Company Number: US-ELI_LILLY_AND_COMPANY-US200709003207

PATIENT
  Sex: Female

DRUGS (2)
  1. FORTEO [Suspect]
     Dates: end: 20070101
  2. FOSAMAX [Concomitant]

REACTIONS (5)
  - ANKLE FRACTURE [None]
  - FALL [None]
  - LIMB INJURY [None]
  - PRURITUS [None]
  - SKIN DISORDER [None]
